FAERS Safety Report 13057397 (Version 2)
Quarter: 2017Q1

REPORT INFORMATION
  Report Type: Spontaneous
  Country: DE (occurrence: DE)
  Receive Date: 20161223
  Receipt Date: 20170212
  Transmission Date: 20170428
  Serious: Yes (Other)
  Sender: FDA-Public Use
  Company Number: DE-JNJFOC-20161213626

PATIENT
  Sex: Female

DRUGS (2)
  1. REGAINE FRAUEN [Suspect]
     Active Substance: MINOXIDIL
     Route: 065
  2. REGAINE FRAUEN [Suspect]
     Active Substance: MINOXIDIL
     Indication: PRODUCT USED FOR UNKNOWN INDICATION
     Route: 065

REACTIONS (3)
  - Underdose [Unknown]
  - Inappropriate schedule of drug administration [Unknown]
  - Breast cancer [Unknown]

NARRATIVE: CASE EVENT DATE: 20161201
